FAERS Safety Report 25006293 (Version 2)
Quarter: 2025Q1

REPORT INFORMATION
  Report Type: Report from Study
  Country: US (occurrence: US)
  Receive Date: 20250224
  Receipt Date: 20250321
  Transmission Date: 20250409
  Serious: No
  Sender: SUNOVION
  Company Number: US-SMPA-2025SPA001218AA

PATIENT

DRUGS (6)
  1. ORGOVYX [Suspect]
     Active Substance: RELUGOLIX
     Indication: Prostate cancer
     Dosage: 120 MG, QD
     Route: 048
     Dates: start: 20250104
  2. DUTASTERIDE [Concomitant]
     Active Substance: DUTASTERIDE
     Route: 065
  3. SILODOSIN [Concomitant]
     Active Substance: SILODOSIN
     Route: 065
  4. PREDNISONE [Concomitant]
     Active Substance: PREDNISONE
     Route: 065
  5. VITAMIN D3 [Concomitant]
     Active Substance: CHOLECALCIFEROL
     Route: 065
  6. IRON [Concomitant]
     Active Substance: IRON
     Dosage: 65 MG, TID
     Route: 065
     Dates: end: 202502

REACTIONS (2)
  - Arthralgia [Unknown]
  - Incorrect dose administered [Unknown]
